FAERS Safety Report 9252676 (Version 2)
Quarter: 2013Q4

REPORT INFORMATION
  Report Type: Spontaneous
  Country: FR (occurrence: FR)
  Receive Date: 20130424
  Receipt Date: 20131230
  Transmission Date: 20140711
  Serious: Yes (Hospitalization)
  Sender: FDA-Public Use
  Company Number: FR-GLAXOSMITHKLINE-B0884133A

PATIENT
  Age: 14 Year
  Sex: Female

DRUGS (3)
  1. LAMICTAL [Suspect]
     Indication: EPILEPSY
     Route: 048
     Dates: start: 201302, end: 20130225
  2. PARACETAMOL [Concomitant]
     Route: 048
     Dates: start: 20130224, end: 20130224
  3. ADVIL [Concomitant]
     Route: 048
     Dates: start: 20130224, end: 20130224

REACTIONS (10)
  - Hepatitis [Recovered/Resolved]
  - Lymphadenopathy [Unknown]
  - Pyrexia [Recovered/Resolved]
  - Headache [Unknown]
  - Nausea [Recovered/Resolved]
  - Vomiting [Recovered/Resolved]
  - Abdominal pain [Recovered/Resolved]
  - Transaminases increased [Recovered/Resolved]
  - Asthenia [Recovered/Resolved]
  - Incorrect dose administered [Unknown]
